FAERS Safety Report 18685449 (Version 3)
Quarter: 2021Q1

REPORT INFORMATION
  Report Type: Report from Study
  Country: None (occurrence: NL)
  Receive Date: 20201231
  Receipt Date: 20210111
  Transmission Date: 20210419
  Serious: Yes (Death)
  Sender: FDA-Public Use
  Company Number: NL-ABBVIE-19S-114-2746851-00

PATIENT
  Age: 69 Year
  Sex: Male

DRUGS (12)
  1. DANTROLENE. [Concomitant]
     Active Substance: DANTROLENE SODIUM
     Indication: MUSCLE SPASMS
  2. MADOPAR [Concomitant]
     Active Substance: BENSERAZIDE HYDROCHLORIDE\LEVODOPA
     Indication: PRODUCT USED FOR UNKNOWN INDICATION
  3. FUSIDIN [Concomitant]
     Indication: PRODUCT USED FOR UNKNOWN INDICATION
  4. DUODOPA [Suspect]
     Active Substance: CARBIDOPA\LEVODOPA
     Dosage: MD: 7.8 ML CD: 4.4 ML/H ED: 4.5 ML CDN 2.2 ML/H EDN 4.5 ML?GOES TO 24 HOURS
     Route: 050
  5. PARACETAMOL [Concomitant]
     Active Substance: ACETAMINOPHEN
     Indication: PRODUCT USED FOR UNKNOWN INDICATION
  6. DUODOPA [Suspect]
     Active Substance: CARBIDOPA\LEVODOPA
     Dosage: MD: 10.0, CD: 4.2, ED: 4.5 16 HOUR ADMINISTRATION
     Route: 050
     Dates: start: 20180614
  7. DUODOPA [Suspect]
     Active Substance: CARBIDOPA\LEVODOPA
     Dosage: MD: 7.8 ML CD: 4.6 ML/H ED: 4.5 ML CDN: 2.6 ML/H EDN: 4.5 ML
     Route: 050
  8. VITAMIN B [Concomitant]
     Active Substance: VITAMIN B
     Indication: PRODUCT USED FOR UNKNOWN INDICATION
  9. METFORMIN [Concomitant]
     Active Substance: METFORMIN HYDROCHLORIDE
     Indication: DIABETES MELLITUS
  10. MACROGOL [Concomitant]
     Active Substance: POLYETHYLENE GLYCOLS
     Indication: PRODUCT USED FOR UNKNOWN INDICATION
     Dosage: IF NEEDED
  11. DUODOPA [Suspect]
     Active Substance: CARBIDOPA\LEVODOPA
     Indication: PARKINSON^S DISEASE
     Dosage: MD 12 CD 4.3 ED 4.0
     Route: 050
     Dates: start: 20180611, end: 201806
  12. DUODOPA [Suspect]
     Active Substance: CARBIDOPA\LEVODOPA
     Dosage: MD: 7.8 ML CD: 4.6 ML/H ED: 4.5 ML CDN: 2.4 ML/H EDN: 4.5 ML?REMAINS AT 24 HOURS
     Route: 050

REACTIONS (40)
  - Abdominal discomfort [Not Recovered/Not Resolved]
  - Dizziness [Recovering/Resolving]
  - Dyskinesia [Recovered/Resolved]
  - Abdominal distension [Not Recovered/Not Resolved]
  - Pain in extremity [Not Recovered/Not Resolved]
  - Abnormal faeces [Recovered/Resolved]
  - Restlessness [Not Recovered/Not Resolved]
  - Diarrhoea [Recovered/Resolved]
  - Insomnia [Not Recovered/Not Resolved]
  - Muscle rigidity [Not Recovered/Not Resolved]
  - Tendonitis [Unknown]
  - Impaired quality of life [Unknown]
  - Weight decreased [Not Recovered/Not Resolved]
  - Stoma site discharge [Not Recovered/Not Resolved]
  - Euthanasia [Fatal]
  - Weight decreased [Recovering/Resolving]
  - On and off phenomenon [Not Recovered/Not Resolved]
  - Stoma site hypergranulation [Not Recovered/Not Resolved]
  - Muscle contracture [Not Recovered/Not Resolved]
  - Fibroma [Recovered/Resolved]
  - Fibroma [Not Recovered/Not Resolved]
  - Muscle spasms [Not Recovered/Not Resolved]
  - Unevaluable event [Recovering/Resolving]
  - Irritability [Not Recovered/Not Resolved]
  - Decreased appetite [Not Recovered/Not Resolved]
  - Memory impairment [Not Recovered/Not Resolved]
  - Quality of life decreased [Unknown]
  - Dystonia [Unknown]
  - Weight increased [Unknown]
  - Asthenia [Not Recovered/Not Resolved]
  - Nausea [Recovering/Resolving]
  - Polyneuropathy [Not Recovered/Not Resolved]
  - Pain [Not Recovered/Not Resolved]
  - Stoma site discharge [Recovered/Resolved]
  - General physical health deterioration [Not Recovered/Not Resolved]
  - Musculoskeletal stiffness [Not Recovered/Not Resolved]
  - Discomfort [Unknown]
  - Fatigue [Unknown]
  - Therapeutic product effect variable [Not Recovered/Not Resolved]
  - Stoma site erythema [Not Recovered/Not Resolved]

NARRATIVE: CASE EVENT DATE: 201806
